FAERS Safety Report 5542081-8 (Version None)
Quarter: 2007Q4

REPORT INFORMATION
  Report Type: 
  Country: None (occurrence: None)
  Receive Date: 20071210
  Receipt Date: 20061206
  Transmission Date: 20080405
  Serious: No
  Sender: FDA-Public Use
  Company Number: US-AMGEN-US197494

PATIENT
  Sex: Female

DRUGS (8)
  1. ENBREL [Suspect]
     Indication: RHEUMATOID ARTHRITIS
     Route: 058
     Dates: start: 20060301, end: 20061018
  2. ENBREL [Suspect]
     Route: 058
     Dates: start: 20061025
  3. ALPRAZOLAM [Concomitant]
     Route: 065
  4. TYLENOL [Concomitant]
     Route: 065
  5. OS-CAL [Concomitant]
     Route: 065
  6. AMBIEN [Concomitant]
     Route: 065
  7. EFFEXOR [Concomitant]
     Route: 065
  8. FOLIC ACID [Concomitant]
     Route: 065

REACTIONS (2)
  - INJECTION SITE REACTION [None]
  - URTICARIA [None]
